FAERS Safety Report 17546570 (Version 1)
Quarter: 2020Q1

REPORT INFORMATION
  Report Type: Spontaneous
  Country: GB (occurrence: GB)
  Receive Date: 20200316
  Receipt Date: 20200316
  Transmission Date: 20200409
  Serious: Yes (Life-Threatening, Other)
  Sender: FDA-Public Use
  Company Number: GB-SHIRE-GB202009757

PATIENT

DRUGS (3)
  1. LEVOTHYROXINE SODIUM. [Concomitant]
     Active Substance: LEVOTHYROXINE SODIUM
     Indication: PRODUCT USED FOR UNKNOWN INDICATION
  2. SALBUTAMOL SULFATE [Concomitant]
     Active Substance: ALBUTEROL SULFATE
     Indication: PRODUCT USED FOR UNKNOWN INDICATION
  3. INTUNIV [Suspect]
     Active Substance: GUANFACINE HYDROCHLORIDE
     Indication: ATTENTION DEFICIT/HYPERACTIVITY DISORDER
     Dosage: 2 MILLIGRAM
     Route: 048
     Dates: start: 20200216, end: 20200220

REACTIONS (15)
  - Nocturia [Unknown]
  - Asthenia [Unknown]
  - Gastrointestinal pain [Unknown]
  - Paraesthesia [Unknown]
  - Anxiety [Unknown]
  - Somnolence [Unknown]
  - Dyspnoea [Unknown]
  - Muscular weakness [Unknown]
  - Constipation [Unknown]
  - Irritability [Unknown]
  - Hypotension [Not Recovered/Not Resolved]
  - Hallucination [Unknown]
  - Dizziness [Unknown]
  - Terminal insomnia [Unknown]
  - Peripheral coldness [Unknown]

NARRATIVE: CASE EVENT DATE: 20200217
